FAERS Safety Report 13325679 (Version 3)
Quarter: 2018Q1

REPORT INFORMATION
  Report Type: Spontaneous
  Country: IT (occurrence: IT)
  Receive Date: 20170310
  Receipt Date: 20180317
  Transmission Date: 20180508
  Serious: Yes (Death, Hospitalization)
  Sender: FDA-Public Use
  Company Number: IT-ABBVIE-17P-083-1898389-00

PATIENT
  Age: 85 Year
  Sex: Female
  Weight: 62 kg

DRUGS (4)
  1. EXVIERA [Suspect]
     Active Substance: DASABUVIR
     Indication: CHRONIC HEPATITIS C
     Route: 048
     Dates: start: 20170129, end: 20170223
  2. COPEGUS [Suspect]
     Active Substance: RIBAVIRIN
     Indication: CHRONIC HEPATITIS C
     Route: 048
     Dates: start: 20170129, end: 20170223
  3. COPEGUS [Suspect]
     Active Substance: RIBAVIRIN
     Route: 048
     Dates: start: 20170129, end: 20170223
  4. VIEKIRAX [Suspect]
     Active Substance: OMBITASVIR\PARITAPREVIR\RITONAVIR
     Indication: CHRONIC HEPATITIS C
     Route: 048
     Dates: start: 20170129, end: 20170223

REACTIONS (16)
  - Malaise [Unknown]
  - Bacterial test positive [Unknown]
  - Jaundice [Unknown]
  - Renal impairment [Unknown]
  - Hypotension [Unknown]
  - Blood lactic acid increased [Unknown]
  - White blood cell disorder [Unknown]
  - Enterococcal infection [Fatal]
  - C-reactive protein increased [Unknown]
  - Ascites [Unknown]
  - Oedema [Unknown]
  - Oedema peripheral [Unknown]
  - Klebsiella infection [Fatal]
  - Multiple organ dysfunction syndrome [Fatal]
  - Oliguria [Unknown]
  - Metabolic acidosis [Unknown]

NARRATIVE: CASE EVENT DATE: 20170223
